FAERS Safety Report 4499708-1 (Version None)
Quarter: 2004Q4

REPORT INFORMATION
  Report Type: 
  Country: None (occurrence: None)
  Receive Date: 20041108
  Receipt Date: 20041021
  Transmission Date: 20050328
  Serious: Yes (Hospitalization)
  Sender: FDA-Public Use
  Company Number: DSA_25235_2004

PATIENT
  Age: 54 Year
  Sex: Female

DRUGS (2)
  1. TAVOR [Suspect]
     Dosage: 6 MG ONCE PO
     Route: 048
     Dates: start: 20041015, end: 20041015
  2. STILNOX [Suspect]
     Dosage: 6 TAB ONCE PO
     Route: 048
     Dates: start: 20041015, end: 20041015

REACTIONS (2)
  - ACCIDENTAL OVERDOSE [None]
  - VOMITING [None]
